FAERS Safety Report 4731843-2 (Version None)
Quarter: 2005Q3

REPORT INFORMATION
  Report Type: 
  Country: None (occurrence: None)
  Receive Date: 20050802
  Receipt Date: 20050802
  Transmission Date: 20060218
  Serious: No
  Sender: FDA-Public Use
  Company Number: None

PATIENT
  Sex: Female
  Weight: 54 kg

DRUGS (5)
  1. LINEZOLID           PFIZER [Suspect]
     Indication: RENAL ABSCESS
     Dosage: 600MG   TWICE DAILY   ORAL
     Route: 048
     Dates: start: 20050626, end: 20050724
  2. LEVOFLOXACIN [Concomitant]
  3. FLAGY [Concomitant]
  4. VANCOMYCIN [Concomitant]
  5. PREVACID [Concomitant]

REACTIONS (3)
  - LEUKOPENIA [None]
  - NEUROPATHY PERIPHERAL [None]
  - PAIN IN EXTREMITY [None]
